FAERS Safety Report 20875044 (Version 2)
Quarter: 2022Q4

REPORT INFORMATION
  Report Type: Spontaneous
  Country: US (occurrence: US)
  Receive Date: 20220526
  Receipt Date: 20221114
  Transmission Date: 20230113
  Serious: Yes (Hospitalization)
  Sender: FDA-Public Use
  Company Number: US-CELGENE-USA-20220208176

PATIENT
  Age: 76 Year
  Sex: Male
  Weight: 76.2 kg

DRUGS (3)
  1. POMALYST [Suspect]
     Active Substance: POMALIDOMIDE
     Indication: Plasma cell myeloma
     Dosage: 4 MILLIGRAM
     Route: 048
     Dates: start: 20210728
  2. POMALYST [Suspect]
     Active Substance: POMALIDOMIDE
     Dosage: 3 MILLIGRAM??2 WEEKS ON, 1 WEEK OFF
     Route: 048
     Dates: start: 202111
  3. POMALYST [Suspect]
     Active Substance: POMALIDOMIDE
     Dosage: DAILY FOR 14DAYS
     Route: 048
     Dates: start: 20210701

REACTIONS (7)
  - Fatigue [Unknown]
  - Muscle spasms [Unknown]
  - Diarrhoea [Unknown]
  - Dizziness [Unknown]
  - COVID-19 [Recovered/Resolved]
  - Pruritus [Unknown]
  - Off label use [Unknown]
